FAERS Safety Report 22296804 (Version 3)
Quarter: 2023Q2

REPORT INFORMATION
  Report Type: Report from Study
  Country: US (occurrence: None)
  Receive Date: 20230509
  Receipt Date: 20230619
  Transmission Date: 20230722
  Serious: Yes (Other)
  Sender: FDA-Public Use
  Company Number: US-ROCHE-3343835

PATIENT
  Age: 47 Year
  Sex: Male
  Weight: 83 kg

DRUGS (6)
  1. ATEZOLIZUMAB [Suspect]
     Active Substance: ATEZOLIZUMAB
     Indication: Cholangiocarcinoma
     Dosage: CURRENT_TREATMENT_DATE: 11/JAN/2023?FREQUENCY: OVER 30-60 MINUTES ON DAYS 1 AND 15 OF EACH CYCLE?LAS
     Route: 041
     Dates: start: 20230111
  2. ATEZOLIZUMAB [Suspect]
     Active Substance: ATEZOLIZUMAB
     Indication: Bile duct adenocarcinoma
  3. COBIMETINIB [Suspect]
     Active Substance: COBIMETINIB
     Indication: Cholangiocarcinoma
     Dosage: CURRENT_TREATMENT_DATE:11/JAN/2023?LAST ADMINISTRATION WAS ON 31/JAN/2023
     Route: 048
  4. COBIMETINIB [Suspect]
     Active Substance: COBIMETINIB
     Indication: Bile duct adenocarcinoma
  5. VARLILUMAB [Suspect]
     Active Substance: VARLILUMAB
     Indication: Cholangiocarcinoma
     Dosage: CURRENT TREATMENT DATE WAS 11JAN2023?FREQUENCY: OVER 90 MINUTES ON DAYS 1 AND 15 OF EACH CYCLE?LAST
     Route: 042
  6. VARLILUMAB [Suspect]
     Active Substance: VARLILUMAB
     Indication: Bile duct adenocarcinoma

REACTIONS (4)
  - Blood bilirubin increased [Recovered/Resolved]
  - Alanine aminotransferase increased [Recovered/Resolved]
  - Lymphocyte count decreased [Recovered/Resolved]
  - Dermatitis acneiform [Not Recovered/Not Resolved]

NARRATIVE: CASE EVENT DATE: 20230201
